FAERS Safety Report 22151227 (Version 1)
Quarter: 2023Q1

REPORT INFORMATION
  Report Type: Spontaneous
  Country: GB (occurrence: GB)
  Receive Date: 20230329
  Receipt Date: 20230329
  Transmission Date: 20230418
  Serious: Yes (Life-Threatening, Hospitalization)
  Sender: FDA-Public Use
  Company Number: GB-MYLANLABS-2023M1032777

PATIENT
  Age: 3 Decade
  Sex: Male

DRUGS (1)
  1. CIPROFLOXACIN [Suspect]
     Active Substance: CIPROFLOXACIN
     Indication: Gastrointestinal bacterial overgrowth
     Dosage: UNK
     Route: 065

REACTIONS (5)
  - Vitamin K deficiency [Recovered/Resolved]
  - Condition aggravated [Recovered/Resolved]
  - Pericardial haemorrhage [Unknown]
  - Cardiac tamponade [Unknown]
  - Pericardial effusion [Unknown]
